FAERS Safety Report 25449494 (Version 1)
Quarter: 2025Q2

REPORT INFORMATION
  Report Type: Spontaneous
  Country: US (occurrence: US)
  Receive Date: 20250618
  Receipt Date: 20250618
  Transmission Date: 20250717
  Serious: No
  Sender: TARO
  Company Number: US-TARO PHARMACEUTICALS USA INC.-2024TAR01194

PATIENT

DRUGS (1)
  1. FEVERALL [Suspect]
     Active Substance: ACETAMINOPHEN
     Indication: Pyrexia
     Dosage: UNK, 1DOSE/4HOURS,2 SUPPOSITORY FOR EVERY DOSE (6 SUPPOSITORIES)
     Route: 054
     Dates: start: 20240723

REACTIONS (3)
  - Anal erythema [Not Recovered/Not Resolved]
  - Faeces hard [Not Recovered/Not Resolved]
  - Dry skin [Not Recovered/Not Resolved]

NARRATIVE: CASE EVENT DATE: 20240726
